FAERS Safety Report 21382506 (Version 2)
Quarter: 2023Q1

REPORT INFORMATION
  Report Type: Report from Study
  Country: US (occurrence: None)
  Receive Date: 20220927
  Receipt Date: 20230216
  Transmission Date: 20230418
  Serious: Yes (Hospitalization)
  Sender: FDA-Public Use
  Company Number: US-ROCHE-3123132

PATIENT
  Age: 69 Year
  Sex: Female
  Weight: 68 kg

DRUGS (13)
  1. PIRFENIDONE [Suspect]
     Active Substance: PIRFENIDONE
     Indication: Idiopathic pulmonary fibrosis
     Dosage: START DATE OF MOST RECENT DOSE OF STUDY DRUG?PRIOR TO AE/SAE 801 MG  01/FEB/2022
     Route: 048
     Dates: start: 2014
  2. CLOPIDOGREL [Concomitant]
     Active Substance: CLOPIDOGREL BISULFATE
     Route: 048
     Dates: start: 202101
  3. EVOLOCUMAB [Concomitant]
     Active Substance: EVOLOCUMAB
     Indication: Hypercholesterolaemia
     Route: 058
     Dates: start: 2015
  4. ICOSAPENT ETHYL [Concomitant]
     Active Substance: ICOSAPENT ETHYL
     Indication: Hypercholesterolaemia
     Route: 048
     Dates: start: 2015
  5. METOPROLOL SUCCINATE [Concomitant]
     Active Substance: METOPROLOL SUCCINATE
     Indication: Hypertension
     Route: 048
     Dates: start: 1991
  6. OMEPRAZOLE [Concomitant]
     Active Substance: OMEPRAZOLE
     Indication: Gastrooesophageal reflux disease
     Route: 048
     Dates: start: 1991
  7. AMIODARONE [Concomitant]
     Active Substance: AMIODARONE
     Indication: Atrial fibrillation
     Dates: start: 2021
  8. QUINAPRIL [Concomitant]
     Active Substance: QUINAPRIL
     Indication: Myocardial infarction
     Route: 048
     Dates: start: 2006
  9. SERTRALINE [Concomitant]
     Active Substance: SERTRALINE HYDROCHLORIDE
     Indication: Depression
     Route: 048
     Dates: start: 1991
  10. WARFARIN [Concomitant]
     Active Substance: WARFARIN
     Route: 048
     Dates: start: 202101, end: 20220620
  11. WARFARIN [Concomitant]
     Active Substance: WARFARIN
     Route: 048
     Dates: start: 202101, end: 20220620
  12. BENADRYL [Concomitant]
     Active Substance: DIPHENHYDRAMINE HYDROCHLORIDE
     Route: 048
  13. PFIZER-BIONTECH COVID-19 VACCINE [Concomitant]
     Active Substance: TOZINAMERAN

REACTIONS (1)
  - Vascular stent thrombosis [Recovered/Resolved]

NARRATIVE: CASE EVENT DATE: 20220617
